FAERS Safety Report 12246996 (Version 3)
Quarter: 2016Q2

REPORT INFORMATION
  Report Type: Spontaneous
  Country: GB (occurrence: GB)
  Receive Date: 20160407
  Receipt Date: 20160608
  Transmission Date: 20160815
  Serious: Yes (Other)
  Sender: FDA-Public Use
  Company Number: GB-MEDA-2016040016

PATIENT
  Age: 43 Year
  Sex: Male

DRUGS (1)
  1. TORASEMIDE 10 MG [Suspect]
     Active Substance: TORSEMIDE
     Route: 048
     Dates: start: 20160201

REACTIONS (7)
  - Hypoaesthesia [Unknown]
  - Dyspnoea [Unknown]
  - Skin discolouration [Unknown]
  - Flatulence [Unknown]
  - Discomfort [Unknown]
  - Eye colour change [Unknown]
  - Abdominal distension [Unknown]
